FAERS Safety Report 17796109 (Version 2)
Quarter: 2020Q2

REPORT INFORMATION
  Report Type: Spontaneous
  Country: BE (occurrence: BE)
  Receive Date: 20200517
  Receipt Date: 20200604
  Transmission Date: 20200714
  Serious: Yes (Death, Other)
  Sender: FDA-Public Use
  Company Number: BE-ADVANZ PHARMA-202004005128

PATIENT

DRUGS (42)
  1. HYDROXYCHLOROQUINE [Suspect]
     Active Substance: HYDROXYCHLOROQUINE
     Indication: COVID-19 PNEUMONIA
     Dosage: 2 DOSAGE FORM, BID CAPSULE
     Route: 048
     Dates: start: 20200427, end: 20200427
  2. MORPHINE HYDROCHLORIDE [Concomitant]
     Active Substance: MORPHINE HYDROCHLORIDE
     Indication: SEDATION
     Dosage: UNK
     Dates: start: 20200429
  3. SODIUM CHLORIDE. [Concomitant]
     Active Substance: SODIUM CHLORIDE
     Dosage: UNK, MORPHINE HYDROCHLORIDE MIXED WITH SODIUM CHLORIDE
     Dates: start: 20200429
  4. DAFALGAN FORTE [Concomitant]
     Indication: INFLAMMATION
  5. CLEXANE [Concomitant]
     Active Substance: ENOXAPARIN SODIUM
     Indication: ANTICOAGULANT THERAPY
     Dosage: 60/0.6 MG/ML
     Dates: start: 20200426
  6. COVERSYL [Concomitant]
     Active Substance: PERINDOPRIL
     Dosage: UNK
  7. ZOCOR [Concomitant]
     Active Substance: SIMVASTATIN
     Dosage: UNK
  8. HYDROXYCHLOROQUINE [Suspect]
     Active Substance: HYDROXYCHLOROQUINE
     Dosage: 1 DOSAGE FORM, BID, CAPSULE
     Route: 048
     Dates: start: 20200429, end: 20200501
  9. SODIUM CHLORIDE. [Concomitant]
     Active Substance: SODIUM CHLORIDE
     Dosage: UNK
     Dates: start: 20200429, end: 20200430
  10. HYDROXYCHLOROQUINE [Suspect]
     Active Substance: HYDROXYCHLOROQUINE
     Indication: PRODUCT USE IN UNAPPROVED INDICATION
     Dosage: 1 DOSAGE FORM, BID,CAPSULE
     Route: 048
     Dates: start: 20200428, end: 20200428
  11. SIMVASTATINE [Concomitant]
     Active Substance: SIMVASTATIN
     Indication: HYPERLIPIDAEMIA
     Dosage: UNK
     Dates: start: 20200426, end: 20200428
  12. NOVORAPID [Concomitant]
     Active Substance: INSULIN ASPART
     Indication: DIABETES MELLITUS
     Dosage: UNK
     Dates: start: 20200426
  13. LANTUS [Concomitant]
     Active Substance: INSULIN GLARGINE
     Dosage: UNK
  14. KEVZARA [Suspect]
     Active Substance: SARILUMAB
     Indication: COVID-19 PNEUMONIA
     Dosage: 400 MG
     Route: 042
     Dates: start: 20200429, end: 20200430
  15. SARILUMAB AUTOINJECTOR [Suspect]
     Active Substance: SARILUMAB
     Indication: INTERLEUKIN LEVEL INCREASED
  16. CLEXANE [Concomitant]
     Active Substance: ENOXAPARIN SODIUM
     Dosage: 60/0.6 MG/ML
     Dates: start: 20200426
  17. TAMSULOSIN [Concomitant]
     Active Substance: TAMSULOSIN
     Indication: BENIGN PROSTATIC HYPERPLASIA
     Dosage: UNK
     Dates: start: 20200426
  18. MIRTAZAPINE. [Concomitant]
     Active Substance: MIRTAZAPINE
     Dosage: UNK
  19. HYDROXYCHLOROQUINE [Suspect]
     Active Substance: HYDROXYCHLOROQUINE
     Indication: PRODUCT USE IN UNAPPROVED INDICATION
     Dosage: 1 DOSAGE FORM, BID,CAPSULE
     Route: 048
     Dates: start: 20200428, end: 20200429
  20. SARILUMAB AUTOINJECTOR [Suspect]
     Active Substance: SARILUMAB
     Indication: COVID-19 PNEUMONIA
     Dosage: UNK
     Route: 065
  21. CEFUROXIME. [Concomitant]
     Active Substance: CEFUROXIME
     Dosage: UNK
     Dates: start: 20200426, end: 20200429
  22. INDERAL [Concomitant]
     Active Substance: PROPRANOLOL HYDROCHLORIDE
     Indication: HYPERTENSION
     Dosage: UNK
     Dates: start: 20200427
  23. DAFALGAN FORTE [Concomitant]
     Indication: PAIN
     Dosage: UNK
     Dates: start: 20200426
  24. PARACETAMOL B BRAUN [Concomitant]
     Active Substance: ACETAMINOPHEN
     Indication: PYREXIA
     Dosage: UNK
     Dates: start: 20200428
  25. REMERGON [Concomitant]
     Active Substance: MIRTAZAPINE
     Indication: DEPRESSION
     Dosage: UNK
     Dates: start: 20200426, end: 20200428
  26. CYMBALTA [Concomitant]
     Active Substance: DULOXETINE HYDROCHLORIDE
  27. ASAFLOW [Concomitant]
     Active Substance: ASPIRIN
  28. AZITHROMYCIN ANHYDROUS. [Concomitant]
     Active Substance: AZITHROMYCIN ANHYDROUS
     Indication: COVID-19 PNEUMONIA
     Dosage: UNK
     Dates: start: 20200426, end: 20200501
  29. CLOPIDOGREL [Concomitant]
     Active Substance: CLOPIDOGREL BISULFATE
     Indication: ANTICOAGULANT THERAPY
     Dosage: UNK
  30. PANTOMED [Concomitant]
     Indication: ANTACID THERAPY
     Dosage: UNK
     Dates: start: 20200426
  31. SODIUM CHLORIDE. [Concomitant]
     Active Substance: SODIUM CHLORIDE
     Dosage: UNK,MIDAZOLAM HYDROCHLORIDE IN SODIUM CHLORIDE
     Dates: start: 20200430, end: 20200430
  32. KEVZARA [Suspect]
     Active Substance: SARILUMAB
     Indication: PRODUCT USE IN UNAPPROVED INDICATION
  33. AZITHROMYCIN ANHYDROUS. [Concomitant]
     Active Substance: AZITHROMYCIN ANHYDROUS
     Dosage: UNK
     Dates: start: 20200427, end: 20200501
  34. PERINDOPRIL [Concomitant]
     Active Substance: PERINDOPRIL
     Indication: HYPERTENSION
     Dosage: UNK
     Dates: start: 20200427, end: 20200429
  35. HALDOL [Concomitant]
     Active Substance: HALOPERIDOL
     Indication: AGITATION
     Dosage: 2 MG/ML
     Dates: start: 20200427
  36. MIDAZOLAM B BRAUN [Concomitant]
     Indication: INSOMNIA
     Dosage: 5 MG/ML
     Dates: start: 20200430, end: 20200430
  37. CIPROXIN [Concomitant]
     Active Substance: CIPROFLOXACIN
     Indication: URINARY TRACT PAIN
  38. HYDROXYCHLOROQUINE [Suspect]
     Active Substance: HYDROXYCHLOROQUINE
     Indication: COVID-19 PNEUMONIA
     Dosage: 2 DOSAGE FORM, BID, CAPSULE
     Route: 048
     Dates: start: 20200427, end: 20200427
  39. DAFALGAN FORTE [Concomitant]
     Indication: PYREXIA
  40. BASAGLAR [Concomitant]
     Active Substance: INSULIN GLARGINE
     Indication: DIABETES MELLITUS
     Dosage: UNK
     Dates: start: 20200426, end: 20200430
  41. CONTRAMAL [Concomitant]
     Active Substance: TRAMADOL HYDROCHLORIDE
  42. SILDENAFIL SANDOZ [Concomitant]
     Active Substance: SILDENAFIL CITRATE

REACTIONS (5)
  - Product use issue [Unknown]
  - Off label use [Unknown]
  - Condition aggravated [Fatal]
  - Respiratory failure [Fatal]
  - Wrong technique in product usage process [Unknown]

NARRATIVE: CASE EVENT DATE: 20200427
